FAERS Safety Report 7626705-7 (Version None)
Quarter: 2011Q3

REPORT INFORMATION
  Report Type: 
  Country: None (occurrence: None)
  Receive Date: 20110721
  Receipt Date: 20110711
  Transmission Date: 20111222
  Serious: Yes (Other)
  Sender: FDA-Public Use
  Company Number: US-ROCHE-790562

PATIENT
  Sex: Male

DRUGS (2)
  1. BEVACIZUMAB [Suspect]
     Dosage: UNK
     Route: 065
     Dates: start: 20100401
  2. RANIBIZUMAB [Suspect]
     Dosage: 0.5 UNK, 1/MONTH
     Route: 031
     Dates: start: 20110405

REACTIONS (4)
  - JOINT STIFFNESS [None]
  - RASH [None]
  - OEDEMA PERIPHERAL [None]
  - POLYMYALGIA RHEUMATICA [None]
